FAERS Safety Report 12447195 (Version 1)
Quarter: 2016Q2

REPORT INFORMATION
  Report Type: Spontaneous
  Country: US (occurrence: None)
  Receive Date: 20160607
  Receipt Date: 20160607
  Transmission Date: 20160815
  Serious: Yes (Hospitalization)
  Sender: FDA-Public Use
  Company Number: None

PATIENT
  Age: 68 Year
  Sex: Female
  Weight: 63.5 kg

DRUGS (2)
  1. PROLIA [Suspect]
     Active Substance: DENOSUMAB
     Indication: OSTEOPOROSIS
     Dosage: 60 MG/ML  1 TWICE A YEAR INJECTION
     Route: 058
     Dates: start: 20151111, end: 201601
  2. VITAMIN D [Concomitant]
     Active Substance: CHOLECALCIFEROL

REACTIONS (10)
  - Urinary bladder haemorrhage [None]
  - Pain in extremity [None]
  - Abdominal pain [None]
  - Discomfort [None]
  - Renal cyst [None]
  - Arthralgia [None]
  - Myalgia [None]
  - Pain [None]
  - Groin pain [None]
  - Dysuria [None]

NARRATIVE: CASE EVENT DATE: 20151111
